FAERS Safety Report 25802638 (Version 1)
Quarter: 2025Q3

REPORT INFORMATION
  Report Type: Spontaneous
  Country: US (occurrence: None)
  Receive Date: 20250914
  Receipt Date: 20250914
  Transmission Date: 20251021
  Serious: Yes (Disabling, Other)
  Sender: FDA-CTU
  Company Number: None

PATIENT
  Age: 37 Year
  Sex: Female

DRUGS (21)
  1. BUDESONIDE\FORMOTEROL [Suspect]
     Active Substance: BUDESONIDE\FORMOTEROL
     Indication: Asthma
     Dosage: 2 PUFF(S)  TWICE A DAY RESPIRTORY (INHALATION)???
     Route: 055
     Dates: start: 20250910, end: 20250912
  2. BUDESONIDE\FORMOTEROL [Suspect]
     Active Substance: BUDESONIDE\FORMOTEROL
     Indication: Multiple allergies
  3. VENTOLIN HFA [Concomitant]
     Active Substance: ALBUTEROL SULFATE
  4. QUETIAPINE [Concomitant]
     Active Substance: QUETIAPINE
  5. QUETIAPINE FUMARATE [Concomitant]
     Active Substance: QUETIAPINE FUMARATE
  6. LATANOPROST [Concomitant]
     Active Substance: LATANOPROST
  7. ketaconazole 2%, daily vite [Concomitant]
  8. VITAMIN D3 [Concomitant]
     Active Substance: CHOLECALCIFEROL
  9. XYZAL [Concomitant]
     Active Substance: LEVOCETIRIZINE DIHYDROCHLORIDE
  10. CABERGOLINE [Concomitant]
     Active Substance: CABERGOLINE
  11. FLONASE [Concomitant]
     Active Substance: FLUTICASONE PROPIONATE
  12. MECLIZINE [Concomitant]
     Active Substance: MECLIZINE HYDROCHLORIDE
  13. LEVOTHYROXINE [Concomitant]
     Active Substance: LEVOTHYROXINE
  14. sodium flouride 1.1% dental paste [Concomitant]
  15. baby aspirin ec tablet 81mg [Concomitant]
  16. SIMVASTATIN [Concomitant]
     Active Substance: SIMVASTATIN
  17. FAMOTIDINE [Concomitant]
     Active Substance: FAMOTIDINE
  18. WEGOVY [Concomitant]
     Active Substance: SEMAGLUTIDE
  19. metoprolol succ er tablet [Concomitant]
  20. MIRALAX [Concomitant]
     Active Substance: POLYETHYLENE GLYCOL 3350
  21. TYLENOL EXTRA STRENGTH [Concomitant]
     Active Substance: ACETAMINOPHEN

REACTIONS (2)
  - Oral candidiasis [None]
  - Dizziness [None]

NARRATIVE: CASE EVENT DATE: 20250910
